FAERS Safety Report 8896488 (Version 1)
Quarter: 2012Q4

REPORT INFORMATION
  Report Type: Spontaneous
  Country: IT (occurrence: None)
  Receive Date: 20121102
  Receipt Date: 20121102
  Transmission Date: 20130627
  Serious: Yes (Other)
  Sender: FDA-Public Use
  Company Number: FK201203213

PATIENT
  Age: 34 None
  Sex: Female

DRUGS (1)
  1. CHORIONIC GONADOTROPHIN [Suspect]
     Indication: OVULATION INDUCTION
     Dosage: 5000 IU, following FSH pretreatment, Unknown

REACTIONS (6)
  - Embolic stroke [None]
  - Ovarian hyperstimulation syndrome [None]
  - Leukocytosis [None]
  - Hyperhomocysteinaemia [None]
  - Ascites [None]
  - Intracardiac thrombus [None]
